FAERS Safety Report 12638612 (Version 1)
Quarter: 2016Q3

REPORT INFORMATION
  Report Type: Spontaneous
  Country: FR (occurrence: FR)
  Receive Date: 20160809
  Receipt Date: 20160809
  Transmission Date: 20161109
  Serious: Yes (Other)
  Sender: FDA-Public Use
  Company Number: FR-SA-2016SA144601

PATIENT
  Age: 34 Year
  Sex: Female

DRUGS (2)
  1. CORGARD [Suspect]
     Active Substance: NADOLOL
     Route: 065
  2. LOVENOX [Suspect]
     Active Substance: ENOXAPARIN SODIUM
     Dosage: DOSE:40 UNIT(S)
     Route: 065

REACTIONS (2)
  - Foetal growth restriction [Unknown]
  - Oligohydramnios [Unknown]

NARRATIVE: CASE EVENT DATE: 2013
